FAERS Safety Report 19101203 (Version 1)
Quarter: 2021Q2

REPORT INFORMATION
  Report Type: Spontaneous
  Country: US (occurrence: US)
  Receive Date: 20210406
  Receipt Date: 20210406
  Transmission Date: 20210717
  Serious: Yes (Hospitalization)
  Sender: FDA-Public Use
  Company Number: None

PATIENT
  Sex: Female

DRUGS (14)
  1. IBUPROFEN. [Concomitant]
     Active Substance: IBUPROFEN
  2. LISINOPRIL. [Concomitant]
     Active Substance: LISINOPRIL
  3. CALCIUM [Concomitant]
     Active Substance: CALCIUM
  4. CENTRUM SILVER [Concomitant]
     Active Substance: MINERALS\VITAMINS
  5. PROZAC [Concomitant]
     Active Substance: FLUOXETINE HYDROCHLORIDE
  6. ZYRTEC ALLGY [Concomitant]
  7. NORVASC [Concomitant]
     Active Substance: AMLODIPINE BESYLATE
  8. TOPIRAMATE. [Concomitant]
     Active Substance: TOPIRAMATE
  9. VITAMIN D3 [Concomitant]
     Active Substance: CHOLECALCIFEROL
  10. DIMETHYL FUM 240MG CAP [Suspect]
     Active Substance: DIMETHYL FUMARATE
     Indication: MULTIPLE SCLEROSIS
     Route: 048
     Dates: start: 20200927
  11. LOVASTATIN. [Concomitant]
     Active Substance: LOVASTATIN
  12. PREGABALIN. [Concomitant]
     Active Substance: PREGABALIN
  13. BACLOFEN. [Concomitant]
     Active Substance: BACLOFEN
  14. ZINC. [Concomitant]
     Active Substance: ZINC

REACTIONS (2)
  - Hospitalisation [None]
  - Condition aggravated [None]
